FAERS Safety Report 20124737 (Version 5)
Quarter: 2022Q1

REPORT INFORMATION
  Report Type: Spontaneous
  Country: GB (occurrence: GB)
  Receive Date: 20211129
  Receipt Date: 20220317
  Transmission Date: 20220423
  Serious: Yes (Other)
  Sender: FDA-Public Use
  Company Number: GB-002147023-NVSC2021GB263576

PATIENT
  Sex: Male

DRUGS (6)
  1. LUCENTIS [Suspect]
     Active Substance: RANIBIZUMAB
     Indication: Neovascular age-related macular degeneration
     Route: 065
  2. LUCENTIS [Suspect]
     Active Substance: RANIBIZUMAB
     Route: 065
  3. LUCENTIS [Suspect]
     Active Substance: RANIBIZUMAB
     Dosage: 0.165 ML
     Route: 031
  4. LUCENTIS [Suspect]
     Active Substance: RANIBIZUMAB
     Route: 031
  5. LUCENTIS [Suspect]
     Active Substance: RANIBIZUMAB
     Route: 031
  6. LUCENTIS [Suspect]
     Active Substance: RANIBIZUMAB
     Route: 031

REACTIONS (4)
  - Blindness transient [Recovered/Resolved]
  - Blood pressure increased [Unknown]
  - Intraocular pressure increased [Unknown]
  - Product quality issue [Unknown]
